FAERS Safety Report 9323265 (Version 1)
Quarter: 2013Q2

REPORT INFORMATION
  Report Type: Spontaneous
  Country: US (occurrence: US)
  Receive Date: 20130603
  Receipt Date: 20130603
  Transmission Date: 20140414
  Serious: Yes (Life-Threatening, Hospitalization, Other)
  Sender: FDA-Public Use
  Company Number: US-ABBOTT-13P-163-1096591-00

PATIENT
  Age: 66 Year
  Sex: Female

DRUGS (14)
  1. NIASPAN (COATED) [Suspect]
     Indication: HYPERTRIGLYCERIDAEMIA
     Route: 048
     Dates: start: 2006, end: 20120313
  2. AXITINIB [Suspect]
     Indication: RENAL CELL CARCINOMA
     Route: 048
     Dates: start: 20120126, end: 20120219
  3. AXITINIB [Suspect]
     Route: 048
     Dates: start: 20120220, end: 20120305
  4. AXITINIB [Suspect]
     Route: 048
     Dates: start: 20120306, end: 20120312
  5. AXITINIB [Suspect]
     Route: 048
     Dates: start: 20120319, end: 20120411
  6. ASPIRIN [Concomitant]
     Indication: PRODUCT USED FOR UNKNOWN INDICATION
     Route: 048
     Dates: start: 2006, end: 201204
  7. METOPROLOL [Concomitant]
     Indication: PRODUCT USED FOR UNKNOWN INDICATION
     Route: 048
     Dates: start: 20120209, end: 20120326
  8. VYTORIN [Concomitant]
     Indication: HYPERTRIGLYCERIDAEMIA
     Dosage: 10/20 MG DAILY
     Route: 048
     Dates: start: 2006
  9. FISH OIL [Concomitant]
     Indication: PRODUCT USED FOR UNKNOWN INDICATION
     Dosage: 6 - 1200 MG TABLETS TWICE DAILY
     Route: 048
     Dates: start: 2006, end: 201204
  10. RAMIPRIL [Concomitant]
     Indication: HYPERTENSION
     Route: 048
     Dates: start: 2006
  11. ALPRAZOLAM [Concomitant]
     Indication: ANXIETY
     Route: 048
     Dates: start: 20120127, end: 201204
  12. HYDROCHLOROTHIAZIDE [Concomitant]
     Indication: PRODUCT USED FOR UNKNOWN INDICATION
     Route: 048
     Dates: start: 20120210, end: 20120423
  13. LEVOTHYROXINE [Concomitant]
     Indication: PRODUCT USED FOR UNKNOWN INDICATION
     Route: 048
     Dates: start: 20120215, end: 201206
  14. PROMETHAZINE [Concomitant]
     Indication: NAUSEA
     Route: 048
     Dates: start: 20120307, end: 20120423

REACTIONS (6)
  - Post procedural haemorrhage [Recovered/Resolved]
  - Alanine aminotransferase increased [Recovered/Resolved]
  - Platelet count decreased [Recovered/Resolved]
  - Platelet count decreased [Recovered/Resolved]
  - Coagulopathy [Recovered/Resolved]
  - International normalised ratio abnormal [Recovered/Resolved]
